FAERS Safety Report 12293948 (Version 1)
Quarter: 2016Q2

REPORT INFORMATION
  Report Type: Spontaneous
  Country: US (occurrence: US)
  Receive Date: 20160422
  Receipt Date: 20160422
  Transmission Date: 20160815
  Serious: No
  Sender: FDA-Public Use
  Company Number: US-HOSPIRA-3081188

PATIENT

DRUGS (2)
  1. SODIUM CHLORIDE. [Concomitant]
     Active Substance: SODIUM CHLORIDE
     Indication: MEDICATION DILUTION
     Dosage: OVER FIVE HOURS
     Route: 041
     Dates: start: 20151112, end: 20151112
  2. LIDOCAINE HYDROCHLORIDE. [Suspect]
     Active Substance: LIDOCAINE HYDROCHLORIDE
     Indication: PRODUCT USED FOR UNKNOWN INDICATION
     Dosage: OVER FIVE HOURS
     Route: 041
     Dates: start: 20151112, end: 20151112

REACTIONS (3)
  - Product preparation error [Recovered/Resolved]
  - Incorrect route of drug administration [Recovered/Resolved]
  - No adverse event [None]

NARRATIVE: CASE EVENT DATE: 20151112
